FAERS Safety Report 19765038 (Version 1)
Quarter: 2021Q3

REPORT INFORMATION
  Report Type: Spontaneous
  Country: US (occurrence: US)
  Receive Date: 20210830
  Receipt Date: 20210830
  Transmission Date: 20211014
  Serious: Yes (Disabling, Other)
  Sender: FDA-Public Use
  Company Number: US-TEVA-2021-US-1947030

PATIENT
  Age: 56 Year
  Sex: Female
  Weight: 74.8 kg

DRUGS (37)
  1. CALCIUM CITRATE [Concomitant]
     Active Substance: CALCIUM CITRATE
     Dosage: TAKE 3 TABS BY MOUTH DAILY
     Route: 048
     Dates: end: 20140303
  2. TAXOL [Suspect]
     Active Substance: PACLITAXEL
     Indication: OVARIAN CANCER STAGE III
     Dosage: DOSAGE: 60MG/M2, ADMINISTERED ON DAY 8
     Route: 033
     Dates: start: 20140414, end: 20140804
  3. MULTIVITAMINS [Concomitant]
     Active Substance: VITAMINS
     Dosage: TAKE 1 TAB BY MOUTH DAILY, QD, ONGOING
     Route: 048
     Dates: start: 197509
  4. ENOXAPARIN [Concomitant]
     Active Substance: ENOXAPARIN
     Indication: THROMBOSIS PROPHYLAXIS
     Dosage: 0.4 ML BY SUBCUTANEOUS ROUTE DAILY EVERY MORNING
     Route: 058
     Dates: start: 20140316, end: 20140428
  5. ATIVAN [Concomitant]
     Active Substance: LORAZEPAM
     Dosage: 0.5 ML
     Dates: start: 20140407
  6. DOCETAXEL SAGENT [Suspect]
     Active Substance: DOCETAXEL
     Indication: OVARIAN CANCER STAGE III
     Dosage: DOSAGE : 60 MG/M2, NO OF CYCLES: 06, FREQUENCY: EVERY 3 WEEKS
     Route: 042
     Dates: start: 20140407, end: 20140728
  7. MAGNESIUM SULFATE. [Concomitant]
     Active Substance: MAGNESIUM SULFATE
     Dosage: CONTINUOUS
     Route: 042
     Dates: start: 20140407, end: 20141006
  8. SODIUM CHLORIDE. [Concomitant]
     Active Substance: SODIUM CHLORIDE
     Dosage: 0.9% IV SOLUTION 500 ML
     Route: 042
     Dates: start: 20140407, end: 20140804
  9. EMEND [Concomitant]
     Active Substance: APREPITANT
     Dosage: 150 MG IN SODIUM CHLORIDE 0.9%, WITH OVERFILL 280 ML, ONCE
     Route: 042
     Dates: start: 20140407, end: 20140804
  10. HEPARIN [Concomitant]
     Active Substance: HEPARIN SODIUM
     Dosage: 100 UNIT/ML FLUSH INJECTION 5 ML
     Route: 042
     Dates: start: 20140407, end: 20140804
  11. VITAMIN D3 [Concomitant]
     Active Substance: CHOLECALCIFEROL
     Dosage: 400 UNITS, TAKE 1 CAP BY MOUTH DAILY
     Route: 048
     Dates: end: 20140303
  12. POLYETHYLENE GLYCOL [Concomitant]
     Active Substance: POLYETHYLENE GLYCOLS
     Indication: CONSTIPATION
     Dosage: TAKE 17 G BY MOUTH DAILY. MIX 1 CAPFUL WITH 4 TO 8 OZ OF WATER, JUICE,SODA, COFFEE OR TEA
     Route: 048
     Dates: start: 20140316, end: 20140519
  13. OMEGA?3 FATTY ACIDS [Concomitant]
     Active Substance: OMEGA-3 FATTY ACIDS
     Dosage: TAKE 1 TAB BY MOUTH DAILY
     Route: 048
  14. VITAMIN?B COMPLEX [Concomitant]
     Dosage: BY MOUTH DAILY
     Route: 048
     Dates: end: 20150414
  15. MAGNESIUM [Concomitant]
     Active Substance: MAGNESIUM
     Dosage: TAKE BY MOUTH DAILY
     Route: 048
     Dates: end: 20160516
  16. DEXAMETHASONE. [Concomitant]
     Active Substance: DEXAMETHASONE
     Indication: PROPHYLAXIS OF NAUSEA AND VOMITING
     Dosage: 8MG BID THE DAY BEFORE CHEMO, 8MG DAY OF CHEMO, 2 TABS IN MRN, FOR 2 DAYS AFTER CHEMO FOR NAUSEA
     Route: 048
     Dates: start: 20140331, end: 20140804
  17. SODIUM CHLORIDE. [Concomitant]
     Active Substance: SODIUM CHLORIDE
     Dosage: 0.9% IV SOLUTION 500 ML
     Route: 042
     Dates: start: 20140407, end: 20140804
  18. TAXOTERE [Suspect]
     Active Substance: DOCETAXEL
     Indication: OVARIAN CANCER STAGE III
     Dosage: DOSAGE : 60 MG/M2, NO OF CYCLES: 06, FREQUENCY: EVERY 3 WEEKS
     Route: 042
     Dates: start: 20140407, end: 20140728
  19. PLATINOL [Suspect]
     Active Substance: CISPLATIN
     Indication: OVARIAN CANCER STAGE III
     Dosage: DOSAGE: 85MG/M2
     Route: 042
     Dates: start: 20140407, end: 20140728
  20. DECADRON [Concomitant]
     Active Substance: DEXAMETHASONE
     Route: 042
     Dates: start: 20140407
  21. CALCIUM PLUS VITAMIN D [Concomitant]
     Active Substance: CALCIUM\VITAMIN D
     Indication: OSTEOPOROSIS
     Dosage: TAKE BY MOUTH, ONGOING, 1 TAB QD
     Route: 048
     Dates: start: 197509
  22. LORAZEPAM. [Concomitant]
     Active Substance: LORAZEPAM
     Indication: SLEEP DISORDER
  23. EMLA [Concomitant]
     Active Substance: LIDOCAINE\PRILOCAINE
     Dosage: 1 INCH BY TOPICAL ROUTE
     Route: 061
     Dates: start: 20140407, end: 20140804
  24. SOLU?CORTEF [Concomitant]
     Active Substance: HYDROCORTISONE SODIUM SUCCINATE
     Indication: HYPERSENSITIVITY
     Dates: start: 20140407, end: 20140804
  25. BENADRYL [Concomitant]
     Active Substance: DIPHENHYDRAMINE HYDROCHLORIDE
     Indication: HYPERSENSITIVITY
     Dosage: 1 ML BY INTRAVENOUS ROUTE AS NEEDED
     Dates: start: 20140407, end: 20140804
  26. TOPROL XL [Concomitant]
     Active Substance: METOPROLOL SUCCINATE
     Indication: MITRAL VALVE PROLAPSE
     Dosage: TAKE 1 TAB BY MOUTH DAILY, ONGOING
     Route: 048
     Dates: start: 1997
  27. ENOXAPARIN [Concomitant]
     Active Substance: ENOXAPARIN
     Indication: THROMBOSIS PROPHYLAXIS
  28. LORAZEPAM. [Concomitant]
     Active Substance: LORAZEPAM
     Indication: ANXIETY
     Dosage: 1 BY MOUTH EVERY 6 HRS NEEDED, 1 AT BEDTIME FOR SLEEP, 1 TAB Q6H FOR NAUSEA OR ANXIETY DUE TO CHEMO
     Route: 048
     Dates: start: 20140331, end: 20141006
  29. MANNITOL. [Concomitant]
     Active Substance: MANNITOL
     Dosage: CONTINUOUS
     Route: 042
     Dates: start: 20140407, end: 20140804
  30. EPIPEN [Concomitant]
     Active Substance: EPINEPHRINE
     Indication: HYPERSENSITIVITY
     Route: 030
     Dates: start: 20140407, end: 20140804
  31. IBUPROFEN. [Concomitant]
     Active Substance: IBUPROFEN
     Dosage: TAKE 1 TAB BY MOUTH EVERY 6 HOURS
     Route: 048
     Dates: start: 20140316, end: 20160516
  32. ALEVE [Concomitant]
     Active Substance: NAPROXEN SODIUM
     Indication: PAIN
     Dosage: TAKE BY MOUTH AS NEEDED, ONGOING
     Route: 048
     Dates: start: 201105
  33. DOCUSATE [Concomitant]
     Active Substance: DOCUSATE
     Indication: CONSTIPATION
     Dosage: 1 CAP BY MOUTH 2 TIMES DAILY AS NEEDED
     Route: 048
     Dates: start: 20140316, end: 20141006
  34. ONDANSETRON [Concomitant]
     Active Substance: ONDANSETRON
     Dosage: TAKE 1 TAB BY MOUTH EVERY 6 HOURS AS NEEDED
     Route: 048
     Dates: start: 20140316, end: 20141006
  35. SENNA [Concomitant]
     Active Substance: SENNA LEAF\SENNOSIDES\SENNOSIDES A AND B
     Dosage: TAKE 1 TAB BY MOUTH DAILY AS NEEDED.
     Route: 048
     Dates: start: 20140316, end: 20141006
  36. LORAZEPAM. [Concomitant]
     Active Substance: LORAZEPAM
     Indication: PROPHYLACTIC CHEMOTHERAPY
  37. ATIVAN [Concomitant]
     Active Substance: LORAZEPAM
     Indication: PROPHYLAXIS OF NAUSEA AND VOMITING
     Dosage: EVERY 6 HOURS AS NEEDED
     Route: 042
     Dates: start: 20140407, end: 20140804

REACTIONS (27)
  - Madarosis [Recovered/Resolved]
  - Fatigue [Recovering/Resolving]
  - Injection site haemorrhage [Unknown]
  - Hypoaesthesia [Not Recovered/Not Resolved]
  - Injection site oedema [Unknown]
  - Injection site pain [Unknown]
  - Paraesthesia oral [Recovered/Resolved]
  - Depression [Unknown]
  - Alopecia areata [Recovered/Resolved]
  - Neuropathy peripheral [Not Recovered/Not Resolved]
  - Taste disorder [Unknown]
  - Injection site erythema [Unknown]
  - Oral pain [Unknown]
  - Diarrhoea [Unknown]
  - Vomiting [Recovered/Resolved]
  - Paraesthesia [Not Recovered/Not Resolved]
  - Abdominal pain [Recovered/Resolved]
  - Gingival disorder [Unknown]
  - Hair texture abnormal [Recovered/Resolved]
  - Nausea [Recovered/Resolved]
  - Injection site pruritus [Unknown]
  - Constipation [Not Recovered/Not Resolved]
  - Hypoaesthesia oral [Unknown]
  - Neutropenia [Unknown]
  - Hair colour changes [Recovered/Resolved]
  - Off label use [Unknown]
  - Decreased appetite [Unknown]

NARRATIVE: CASE EVENT DATE: 201404
